FAERS Safety Report 25433926 (Version 1)
Quarter: 2025Q2

REPORT INFORMATION
  Report Type: Report from Study
  Country: US (occurrence: US)
  Receive Date: 20250613
  Receipt Date: 20250613
  Transmission Date: 20250716
  Serious: Yes (Hospitalization)
  Sender: TAKEDA
  Company Number: US-TAKEDA-2025TUS030779

PATIENT
  Sex: Female
  Weight: 49 kg

DRUGS (21)
  1. HUMAN IMMUNOGLOBULIN G [Suspect]
     Active Substance: HUMAN IMMUNOGLOBULIN G
     Indication: Immunodeficiency common variable
     Dosage: 10 GRAM, Q2WEEKS
  2. ACETAMINOPHEN [Concomitant]
     Active Substance: ACETAMINOPHEN
  3. EPINEPHRINE [Concomitant]
     Active Substance: EPINEPHRINE
  4. PLAQUENIL [Concomitant]
     Active Substance: HYDROXYCHLOROQUINE SULFATE
  5. ADVIL [Concomitant]
     Active Substance: IBUPROFEN
  6. COENZYME Q10 [Concomitant]
     Active Substance: DIETARY SUPPLEMENT\UBIDECARENONE
  7. PROLIA [Concomitant]
     Active Substance: DENOSUMAB
  8. LEVALBUTEROL HYDROCHLORIDE [Concomitant]
     Active Substance: LEVALBUTEROL HYDROCHLORIDE
  9. FLONASE ALLERGY RELIEF [Concomitant]
     Active Substance: FLUTICASONE PROPIONATE
  10. VITAMIN E [Concomitant]
     Active Substance: .ALPHA.-TOCOPHEROL
  11. ATORVASTATIN CALCIUM [Concomitant]
     Active Substance: ATORVASTATIN CALCIUM
  12. LIDOCAINE [Concomitant]
     Active Substance: LIDOCAINE
  13. OTEZLA [Concomitant]
     Active Substance: APREMILAST
  14. FAMOTIDINE [Concomitant]
     Active Substance: FAMOTIDINE
  15. POTASSIUM CITRATE [Concomitant]
     Active Substance: POTASSIUM CITRATE
  16. CHLORTHALIDONE [Concomitant]
     Active Substance: CHLORTHALIDONE
  17. VITAMIN D3 [Concomitant]
     Active Substance: CHOLECALCIFEROL
  18. DIPHENHYDRAMINE HYDROCHLORIDE [Concomitant]
     Active Substance: DIPHENHYDRAMINE HYDROCHLORIDE
  19. PREDNISOLONE [Concomitant]
     Active Substance: PREDNISOLONE
  20. CETIRIZINE HCL [Concomitant]
     Active Substance: CETIRIZINE HYDROCHLORIDE
  21. VITAMIN B [Concomitant]
     Active Substance: VITAMIN B

REACTIONS (2)
  - Norovirus infection [Unknown]
  - Respiratory tract infection viral [Unknown]
